FAERS Safety Report 12757434 (Version 2)
Quarter: 2016Q4

REPORT INFORMATION
  Report Type: Report from Study
  Country: CA (occurrence: CA)
  Receive Date: 20160919
  Receipt Date: 20161017
  Transmission Date: 20170207
  Serious: Yes (Other)
  Sender: FDA-Public Use
  Company Number: CA-ROCHE-1580116

PATIENT
  Age: 65 Year
  Sex: Female

DRUGS (10)
  1. OMEGA 3 [Concomitant]
     Active Substance: OMEGA-3 FATTY ACIDS
  2. ROSUVASTATIN. [Concomitant]
     Active Substance: ROSUVASTATIN
  3. EURO D [Concomitant]
  4. ACTEMRA [Suspect]
     Active Substance: TOCILIZUMAB
     Indication: RHEUMATOID ARTHRITIS
     Route: 058
     Dates: start: 20150126
  5. IRBESARTAN. [Concomitant]
     Active Substance: IRBESARTAN
  6. ARAVA [Concomitant]
     Active Substance: LEFLUNOMIDE
     Route: 048
  7. TYLENOL [Concomitant]
     Active Substance: ACETAMINOPHEN
  8. METHOTREXATE. [Concomitant]
     Active Substance: METHOTREXATE
     Route: 048
  9. PANTOLOC [Concomitant]
     Active Substance: PANTOPRAZOLE SODIUM
  10. RISEDRONATE [Concomitant]
     Active Substance: RISEDRONATE SODIUM

REACTIONS (13)
  - Finger deformity [Unknown]
  - Limb injury [Not Recovered/Not Resolved]
  - Weight increased [Unknown]
  - Hypertension [Not Recovered/Not Resolved]
  - Lung adenocarcinoma [Not Recovered/Not Resolved]
  - Hand deformity [Unknown]
  - Joint swelling [Not Recovered/Not Resolved]
  - Rheumatoid nodule [Unknown]
  - Peripheral swelling [Not Recovered/Not Resolved]
  - Endometrial adenocarcinoma [Not Recovered/Not Resolved]
  - Pollakiuria [Recovered/Resolved]
  - Arthralgia [Not Recovered/Not Resolved]
  - Synovitis [Unknown]

NARRATIVE: CASE EVENT DATE: 201507
